FAERS Safety Report 7135789-4 (Version None)
Quarter: 2010Q4

REPORT INFORMATION
  Report Type: 
  Country: None (occurrence: None)
  Receive Date: 20101203
  Receipt Date: 20101124
  Transmission Date: 20110411
  Serious: Yes (Hospitalization)
  Sender: FDA-Public Use
  Company Number: CH-PFIZER INC-2010157513

PATIENT
  Age: 31 Year
  Sex: Female

DRUGS (4)
  1. EFFEXOR [Suspect]
     Indication: DEPRESSION
     Dosage: 225 MG, 1X/DAY
     Dates: start: 20090625
  2. EFFEXOR [Suspect]
     Indication: PSYCHOTIC DISORDER
  3. ABILIFY [Suspect]
     Indication: DEPRESSION
     Dosage: 10 MG, 1X/DAY
     Dates: start: 20100616, end: 20100914
  4. ABILIFY [Suspect]
     Indication: PSYCHOTIC DISORDER

REACTIONS (3)
  - ANXIETY [None]
  - SCHIZOPHRENIA, CATATONIC TYPE [None]
  - SELF-INJURIOUS IDEATION [None]
